FAERS Safety Report 15743616 (Version 4)
Quarter: 2019Q4

REPORT INFORMATION
  Report Type: Spontaneous
  Country: US (occurrence: US)
  Receive Date: 20181220
  Receipt Date: 20191125
  Transmission Date: 20200122
  Serious: Yes (Other)
  Sender: FDA-Public Use
  Company Number: US-PFIZER INC-2018523006

PATIENT
  Age: 40 Year
  Sex: Female

DRUGS (1)
  1. XELJANZ XR [Suspect]
     Active Substance: TOFACITINIB CITRATE
     Indication: PAIN
     Dosage: 11 MG, UNK
     Dates: start: 201811

REACTIONS (8)
  - Product use in unapproved indication [Unknown]
  - Sinusitis [Not Recovered/Not Resolved]
  - Inappropriate schedule of product administration [Unknown]
  - Respiratory tract infection [Unknown]
  - Off label use [Unknown]
  - Influenza [Unknown]
  - Malaise [Unknown]
  - Nodule [Unknown]

NARRATIVE: CASE EVENT DATE: 2018
